FAERS Safety Report 19555819 (Version 1)
Quarter: 2021Q3

REPORT INFORMATION
  Report Type: Spontaneous
  Country: ZA (occurrence: ZA)
  Receive Date: 20210715
  Receipt Date: 20210715
  Transmission Date: 20211014
  Serious: Yes (Other)
  Sender: FDA-Public Use
  Company Number: ZA-LUPIN PHARMACEUTICALS INC.-2021-11666

PATIENT
  Sex: Male

DRUGS (4)
  1. NAVALPRO [Concomitant]
     Active Substance: VALPROIC ACID
     Indication: EPILEPSY
     Dosage: 500 MILLIGRAM
     Route: 048
  2. ASPAVOR [Concomitant]
     Active Substance: ATORVASTATIN
     Indication: BLOOD CHOLESTEROL
     Dosage: 10 MILLIGRAM
     Route: 048
  3. ZYTOMIL 10 MG [Suspect]
     Active Substance: ESCITALOPRAM OXALATE
     Indication: EPILEPSY
     Dosage: 10 MILLIGRAM
     Route: 048
  4. AUSTELL AMLODIPINE [Concomitant]
     Indication: HYPERTENSION
     Dosage: 10 MILLIGRAM
     Route: 048

REACTIONS (1)
  - Epilepsy [Unknown]
